APPROVED DRUG PRODUCT: PROPANTHELINE BROMIDE
Active Ingredient: PROPANTHELINE BROMIDE
Strength: 15MG
Dosage Form/Route: TABLET;ORAL
Application: A088377 | Product #001
Applicant: PAR PHARMACEUTICAL INC
Approved: Dec 8, 1983 | RLD: No | RS: No | Type: DISCN